FAERS Safety Report 6781320-2 (Version None)
Quarter: 2010Q2

REPORT INFORMATION
  Report Type: 
  Country: None (occurrence: None)
  Receive Date: 20100621
  Receipt Date: 20100610
  Transmission Date: 20101027
  Serious: Yes (Other)
  Sender: FDA-Public Use
  Company Number: PHHY2010FR07911

PATIENT
  Sex: Male
  Weight: 74 kg

DRUGS (1)
  1. EUCREAS [Suspect]
     Indication: TYPE 2 DIABETES MELLITUS
     Dosage: 1000/50 MG, BID
     Dates: start: 20100122, end: 20100127

REACTIONS (2)
  - DIARRHOEA [None]
  - URTICARIA [None]
